FAERS Safety Report 5747277-8 (Version None)
Quarter: 2008Q2

REPORT INFORMATION
  Report Type: 
  Country: None (occurrence: None)
  Receive Date: 20080523
  Receipt Date: 20080516
  Transmission Date: 20081010
  Serious: Yes (Other)
  Sender: FDA-Public Use
  Company Number: US-RANBAXY-2008RR-15224

PATIENT

DRUGS (10)
  1. FLUCONAZOLE [Suspect]
  2. SIMVASTATIN [Suspect]
  3. THIAMINE [Concomitant]
  4. FOLATE [Concomitant]
  5. INSULIN [Concomitant]
  6. LISINOPRIL [Concomitant]
  7. TERAZOSIN HCL [Concomitant]
  8. TOLTERODINE TARTRATE [Concomitant]
  9. GOSERELIN [Concomitant]
  10. MOMETASONE FUROATE [Concomitant]
     Route: 055

REACTIONS (2)
  - DRUG INTERACTION [None]
  - RHABDOMYOLYSIS [None]
